FAERS Safety Report 26186090 (Version 1)
Quarter: 2025Q4

REPORT INFORMATION
  Report Type: Report from Study
  Country: CA (occurrence: CA)
  Receive Date: 20251222
  Receipt Date: 20251222
  Transmission Date: 20260118
  Serious: Yes (Disabling)
  Sender: GILEAD
  Company Number: CA-GILEAD-2025-0741407

PATIENT
  Age: 30 Year
  Sex: Female

DRUGS (2)
  1. BICTEGRAVIR\EMTRICITABINE\TENOFOVIR ALAFENAMIDE [Suspect]
     Active Substance: BICTEGRAVIR\EMTRICITABINE\TENOFOVIR ALAFENAMIDE
     Indication: HIV infection
     Dosage: 1 TAB ONCE A DAY BY MOUTH
     Route: 048
     Dates: start: 2023
  2. IRON [Concomitant]
     Active Substance: IRON
     Indication: Blood iron decreased
     Dosage: 300 MG - 2 TAB ONCE A DAY
     Dates: start: 2023

REACTIONS (4)
  - Rash pruritic [Recovered/Resolved]
  - Rash [Recovered/Resolved]
  - Dental caries [Not Recovered/Not Resolved]
  - Gingival pain [Not Recovered/Not Resolved]

NARRATIVE: CASE EVENT DATE: 20251001
